FAERS Safety Report 8503982-1 (Version None)
Quarter: 2012Q3

REPORT INFORMATION
  Report Type: 
  Country: None (occurrence: None)
  Receive Date: 20120702
  Receipt Date: 20120615
  Transmission Date: 20120928
  Serious: Yes (Hospitalization)
  Sender: FDA-Public Use
  Company Number: TCI2012A01754

PATIENT
  Age: 62 Year
  Sex: Female

DRUGS (5)
  1. CRESTOR [Concomitant]
  2. LANSOPRAZOLE [Suspect]
     Indication: GASTROOESOPHAGEAL REFLUX DISEASE
     Dosage: 30 MG (30 MG, 1 IN 1 D), PER ORAL; 15 MG (15 MG, 1 IN 1 D), PER ORAP 15 MG 915 MG, 1 IN 1 D), PER OR
     Route: 048
     Dates: start: 20091126, end: 20100106
  3. LANSOPRAZOLE [Suspect]
     Indication: GASTROOESOPHAGEAL REFLUX DISEASE
     Dosage: 30 MG (30 MG, 1 IN 1 D), PER ORAL; 15 MG (15 MG, 1 IN 1 D), PER ORAP 15 MG 915 MG, 1 IN 1 D), PER OR
     Route: 048
     Dates: start: 20100310, end: 20100321
  4. LANSOPRAZOLE [Suspect]
     Indication: GASTROOESOPHAGEAL REFLUX DISEASE
     Dosage: 30 MG (30 MG, 1 IN 1 D), PER ORAL; 15 MG (15 MG, 1 IN 1 D), PER ORAP 15 MG 915 MG, 1 IN 1 D), PER OR
     Route: 048
     Dates: start: 20100107, end: 20100228
  5. SELBEX (TEPRENONE) [Concomitant]

REACTIONS (4)
  - HAEMATOCHEZIA [None]
  - LARGE INTESTINAL ULCER [None]
  - COLITIS MICROSCOPIC [None]
  - DIARRHOEA [None]
